FAERS Safety Report 5755763-X (Version None)
Quarter: 2008Q2

REPORT INFORMATION
  Report Type: 
  Country: None (occurrence: None)
  Receive Date: 20080530
  Receipt Date: 20080530
  Transmission Date: 20081010
  Serious: Yes (Hospitalization)
  Sender: FDA-Public Use
  Company Number: None

PATIENT
  Sex: Female
  Weight: 67 kg

DRUGS (2)
  1. CYCLOPHOSPHAMIDE [Suspect]
     Dosage: 1030 MG
  2. DOXORUBICIN HCL [Suspect]
     Dosage: 103 MG

REACTIONS (4)
  - BRONCHITIS [None]
  - CHEST DISCOMFORT [None]
  - DEHYDRATION [None]
  - PNEUMONIA [None]
